FAERS Safety Report 18779043 (Version 1)
Quarter: 2021Q1

REPORT INFORMATION
  Report Type: Spontaneous
  Country: US (occurrence: US)
  Receive Date: 20210125
  Receipt Date: 20210125
  Transmission Date: 20210419
  Serious: No
  Sender: FDA-Public Use
  Company Number: US-BIOMARINAP-US-2020-133653

PATIENT
  Age: 24 Year
  Sex: Female
  Weight: 65.4 kg

DRUGS (1)
  1. VIMIZIM [Suspect]
     Active Substance: ELOSULFASE ALFA
     Indication: PRODUCT USED FOR UNKNOWN INDICATION
     Dosage: 58 MILLIGRAM, QW
     Route: 042

REACTIONS (1)
  - Exposure to SARS-CoV-2 [Unknown]
